FAERS Safety Report 13614217 (Version 1)
Quarter: 2017Q2

REPORT INFORMATION
  Report Type: Spontaneous
  Country: IT (occurrence: IT)
  Receive Date: 20170606
  Receipt Date: 20170606
  Transmission Date: 20170830
  Serious: Yes (Life-Threatening)
  Sender: FDA-Public Use
  Company Number: IT-ROCHE-1944497

PATIENT
  Age: 78 Year
  Sex: Male

DRUGS (7)
  1. SERENASE (ITALY) [Concomitant]
     Active Substance: HALOPERIDOL
  2. ENALAPRIL [Concomitant]
     Active Substance: ENALAPRIL
  3. ALLOPURINOL. [Concomitant]
     Active Substance: ALLOPURINOL
     Route: 065
  4. LYRICA [Concomitant]
     Active Substance: PREGABALIN
  5. AKINETON [Concomitant]
     Active Substance: BIPERIDEN HYDROCHLORIDE
  6. DELORAZEPAM [Suspect]
     Active Substance: DELORAZEPAM
     Indication: PRODUCT USED FOR UNKNOWN INDICATION
     Dosage: ORAL DROPS, SOLUTION
     Route: 048
     Dates: start: 20160114, end: 20160114
  7. RIVOTRIL [Suspect]
     Active Substance: CLONAZEPAM
     Indication: PRODUCT USED FOR UNKNOWN INDICATION
     Dosage: ORAL DROPS, SOLUTION
     Route: 048
     Dates: start: 20160114, end: 20160114

REACTIONS (2)
  - Sopor [Recovering/Resolving]
  - Drug use disorder [Unknown]

NARRATIVE: CASE EVENT DATE: 20160114
